FAERS Safety Report 25138297 (Version 1)
Quarter: 2025Q1

REPORT INFORMATION
  Report Type: Report from Study
  Country: US (occurrence: US)
  Receive Date: 20250330
  Receipt Date: 20250330
  Transmission Date: 20250408
  Serious: Yes (Other)
  Sender: NOVARTIS
  Company Number: US-002147023-NVSC2025US052055

PATIENT
  Sex: Female

DRUGS (2)
  1. EGATEN [Suspect]
     Active Substance: TRICLABENDAZOLE
     Indication: Fascioliasis
     Dosage: 3 DOSAGE FORM, Q12H
     Route: 065
     Dates: start: 20250123
  2. EGATEN [Suspect]
     Active Substance: TRICLABENDAZOLE
     Dosage: 3 DOSAGE FORM, Q12H
     Route: 065
     Dates: start: 20250124

REACTIONS (3)
  - Paragonimiasis [Unknown]
  - Pulmonary congestion [Unknown]
  - Cough [Unknown]
